FAERS Safety Report 7573976-1 (Version None)
Quarter: 2011Q2

REPORT INFORMATION
  Report Type: 
  Country: None (occurrence: None)
  Receive Date: 20110627
  Receipt Date: 20110511
  Transmission Date: 20111010
  Serious: No
  Sender: FDA-Public Use
  Company Number: US-BAYER-2011-041920

PATIENT
  Age: 49 Year
  Sex: Female
  Weight: 75 kg

DRUGS (5)
  1. PERCOCET [Concomitant]
     Dosage: UNK
     Route: 048
  2. ANTACIDS [Concomitant]
     Route: 048
  3. ALEVE (CAPLET) [Suspect]
     Indication: ARTHRITIS
     Dosage: BOTTLE COUNT 40CT
     Route: 048
  4. ANTIHYPERTENSIVES [Concomitant]
     Dosage: UNK
     Route: 048
  5. CHOLESTEROL- AND TRIGLYCERIDE REDUCERS [Concomitant]
     Dosage: UNK
     Route: 048

REACTIONS (1)
  - DYSPNOEA [None]
